FAERS Safety Report 9135943 (Version 1)
Quarter: 2013Q1

REPORT INFORMATION
  Report Type: Spontaneous
  Country: US (occurrence: US)
  Receive Date: 20130304
  Receipt Date: 20130304
  Transmission Date: 20140127
  Serious: No
  Sender: FDA-Public Use
  Company Number: US-ABBOTT-12P-163-0921347-00

PATIENT
  Age: 65 Year
  Sex: Male
  Weight: 108.05 kg

DRUGS (5)
  1. ANDROGEL 1% [Suspect]
     Indication: BLOOD TESTOSTERONE DECREASED
     Dosage: PACKETS
     Dates: start: 201106
  2. ANDROGEL 1% [Suspect]
     Dosage: 5 GRAMS ALTERNATING WITH 10 GRAMS
  3. ANDROGEL 1% [Suspect]
     Dates: start: 201202
  4. LANTUS [Concomitant]
     Indication: DIABETES MELLITUS
  5. HUMALOG [Concomitant]
     Indication: DIABETES MELLITUS

REACTIONS (4)
  - Blood testosterone decreased [Unknown]
  - Blood testosterone increased [Recovered/Resolved]
  - Blood testosterone decreased [None]
  - Asthenia [Not Recovered/Not Resolved]
